FAERS Safety Report 24050521 (Version 1)
Quarter: 2024Q3

REPORT INFORMATION
  Report Type: Spontaneous
  Country: US (occurrence: US)
  Receive Date: 20240704
  Receipt Date: 20240704
  Transmission Date: 20241017
  Serious: No
  Sender: MERCK
  Company Number: US-009507513-2406USA001555

PATIENT
  Sex: Female

DRUGS (3)
  1. WINREVAIR [Suspect]
     Active Substance: SOTATERCEPT-CSRK
     Dosage: UNK, IN THE ABDOMEN
     Route: 058
     Dates: start: 20240515, end: 20240515
  2. WINREVAIR [Suspect]
     Active Substance: SOTATERCEPT-CSRK
     Dosage: UNK
     Route: 058
     Dates: start: 2024, end: 2024
  3. REMODULIN [Suspect]
     Active Substance: TREPROSTINIL

REACTIONS (3)
  - Injection site pruritus [Recovered/Resolved]
  - Diarrhoea [Recovered/Resolved]
  - Body fat disorder [Unknown]

NARRATIVE: CASE EVENT DATE: 20240101
